FAERS Safety Report 4662574-5 (Version None)
Quarter: 2005Q2

REPORT INFORMATION
  Report Type: 
  Country: None (occurrence: None)
  Receive Date: 20050512
  Receipt Date: 20050426
  Transmission Date: 20051028
  Serious: Yes (Disabling)
  Sender: FDA-Public Use
  Company Number: 2005JP000955

PATIENT
  Age: 75 Year
  Sex: Male

DRUGS (4)
  1. FUNGUARD(MICAFUNGIN) INJECTION [Suspect]
     Dosage: 50.00 MG, UID/QD, IV DRIP
     Route: 041
     Dates: start: 20050425
  2. FAMOTIDINE [Concomitant]
  3. CARBENIN (BETAMIPRON, PANIPENEM) [Concomitant]
  4. CLINDAMYCIN HCL [Concomitant]

REACTIONS (4)
  - ABNORMAL BEHAVIOUR [None]
  - DELIRIUM [None]
  - RESTLESSNESS [None]
  - SPEECH DISORDER [None]
